FAERS Safety Report 11150365 (Version 3)
Quarter: 2015Q3

REPORT INFORMATION
  Report Type: Other
  Country: JP (occurrence: JP)
  Receive Date: 20150531
  Receipt Date: 20150902
  Transmission Date: 20151125
  Serious: Yes (Death, Other)
  Sender: FDA-Public Use
  Company Number: JP-MYLANLABS-2015M1016444

PATIENT

DRUGS (6)
  1. TAKEPRON [Concomitant]
     Active Substance: LANSOPRAZOLE
     Indication: PRODUCT USED FOR UNKNOWN INDICATION
     Dosage: 30 MG, QD
     Route: 048
  2. SOL-MELCORT [Suspect]
     Active Substance: METHYLPREDNISOLONE SODIUM SUCCINATE
     Indication: PACHYMENINGITIS
     Dosage: 1 G, UNK
     Route: 041
     Dates: start: 20150623, end: 20150625
  3. PROSTANDIN                         /00501501/ [Concomitant]
     Indication: PRODUCT USED FOR UNKNOWN INDICATION
     Dosage: UNK, QD
     Route: 062
  4. MAGLAX [Concomitant]
     Active Substance: MAGNESIUM OXIDE
     Indication: PRODUCT USED FOR UNKNOWN INDICATION
     Dosage: 330 MG, BID
     Route: 048
  5. PREDNISOLONE TABLETS 5 ^HOEI^ [Suspect]
     Active Substance: PREDNISOLONE
     Indication: PACHYMENINGITIS
     Dosage: 25 MG, BID
     Route: 048
     Dates: start: 20150626
  6. FOSAMAC [Concomitant]
     Active Substance: ALENDRONATE SODIUM
     Indication: PRODUCT USED FOR UNKNOWN INDICATION
     Dosage: 35 MG, QW
     Route: 048

REACTIONS (4)
  - Sepsis [Unknown]
  - Large intestine perforation [Fatal]
  - Diabetes mellitus [Unknown]
  - Disseminated intravascular coagulation [Unknown]
